FAERS Safety Report 25535394 (Version 3)
Quarter: 2025Q3

REPORT INFORMATION
  Report Type: Spontaneous
  Country: US (occurrence: US)
  Receive Date: 20250709
  Receipt Date: 20250804
  Transmission Date: 20251021
  Serious: Yes (Hospitalization)
  Sender: SANOFI AVENTIS
  Company Number: US-SA-2025SA191215

PATIENT
  Age: 76 Year
  Sex: Male
  Weight: 72.7 kg

DRUGS (16)
  1. FLOMAX [Suspect]
     Active Substance: TAMSULOSIN HYDROCHLORIDE
     Indication: Benign prostatic hyperplasia
     Dosage: 0.4 MG, QD
     Route: 048
     Dates: start: 20250301, end: 20250516
  2. FLOMAX [Suspect]
     Active Substance: TAMSULOSIN HYDROCHLORIDE
     Indication: Prophylaxis
  3. BUPROPION [Concomitant]
     Active Substance: BUPROPION
     Indication: Depression
     Dates: start: 20250319
  4. BUPROPION [Concomitant]
     Active Substance: BUPROPION
     Route: 048
     Dates: start: 2020, end: 20250318
  5. BUPROPION [Concomitant]
     Active Substance: BUPROPION
     Route: 048
     Dates: start: 20250319
  6. IBUPROFEN [Concomitant]
     Active Substance: IBUPROFEN
     Indication: Headache
     Route: 048
     Dates: start: 1999
  7. IBUPROFEN [Concomitant]
     Active Substance: IBUPROFEN
     Dates: start: 1999
  8. ATORVASTATIN [Concomitant]
     Active Substance: ATORVASTATIN
     Indication: Hypercholesterolaemia
     Route: 048
     Dates: start: 2021
  9. SERTRALINE [Concomitant]
     Active Substance: SERTRALINE HYDROCHLORIDE
     Indication: Depression
     Route: 048
     Dates: start: 2022
  10. SERTRALINE [Concomitant]
     Active Substance: SERTRALINE HYDROCHLORIDE
     Dates: start: 2022
  11. SERTRALINE [Concomitant]
     Active Substance: SERTRALINE HYDROCHLORIDE
     Dates: start: 2022
  12. GABAPENTIN [Concomitant]
     Active Substance: GABAPENTIN
     Indication: Headache
     Route: 048
     Dates: start: 2022
  13. GABAPENTIN [Concomitant]
     Active Substance: GABAPENTIN
     Dates: start: 2022
  14. GABAPENTIN [Concomitant]
     Active Substance: GABAPENTIN
     Dates: start: 2022
  15. FERROUS SULFATE [Concomitant]
     Active Substance: FERROUS SULFATE
     Indication: Blood iron decreased
     Route: 048
     Dates: start: 2015
  16. FERROUS SULFATE [Concomitant]
     Active Substance: FERROUS SULFATE
     Dates: start: 2015

REACTIONS (1)
  - Dizziness [Recovered/Resolved]

NARRATIVE: CASE EVENT DATE: 20250401
